FAERS Safety Report 5669575-9 (Version None)
Quarter: 2008Q1

REPORT INFORMATION
  Report Type: 
  Country: None (occurrence: None)
  Receive Date: 20080317
  Receipt Date: 20080305
  Transmission Date: 20080703
  Serious: Yes (Other)
  Sender: FDA-Public Use
  Company Number: PHBS2008BR02313

PATIENT
  Age: 5 Year
  Sex: Male
  Weight: 13 kg

DRUGS (3)
  1. RITALIN [Suspect]
     Dosage: 10 MG, ONCE/SINGLE
     Route: 048
  2. RISPERIDONE [Suspect]
     Route: 048
  3. DEPAKENE [Suspect]
     Route: 048

REACTIONS (4)
  - ACCIDENTAL EXPOSURE [None]
  - DRY MOUTH [None]
  - EYE DISORDER [None]
  - SPEECH DISORDER [None]
